FAERS Safety Report 6243343-1 (Version None)
Quarter: 2009Q2

REPORT INFORMATION
  Report Type: 
  Country: None (occurrence: None)
  Receive Date: 20090624
  Receipt Date: 20090616
  Transmission Date: 20091009
  Serious: Yes (Disabling)
  Sender: FDA-Public Use
  Company Number: JP-MERCK-0906USA02261

PATIENT
  Age: 74 Year
  Sex: Male
  Weight: 59 kg

DRUGS (3)
  1. HYZAAR [Suspect]
     Indication: HYPERTENSION
     Route: 048
     Dates: start: 20090421, end: 20090610
  2. ALMARL [Concomitant]
     Indication: TACHYCARDIA
     Route: 048
     Dates: start: 20090311
  3. MERCAZOLE [Concomitant]
     Indication: BASEDOW'S DISEASE
     Route: 048
     Dates: start: 20090209, end: 20090513

REACTIONS (2)
  - HYPERURICAEMIA [None]
  - RENAL DISORDER [None]
